FAERS Safety Report 21305524 (Version 1)
Quarter: 2022Q3

REPORT INFORMATION
  Report Type: Other
  Country: FR (occurrence: FR)
  Receive Date: 20220908
  Receipt Date: 20220908
  Transmission Date: 20221026
  Serious: Yes (Hospitalization)
  Sender: FDA-Public Use
  Company Number: None

PATIENT

DRUGS (3)
  1. IRBESARTAN [Interacting]
     Active Substance: IRBESARTAN
     Indication: Hypertension
     Dosage: 300 MILLIGRAM
     Route: 048
     Dates: end: 20220807
  2. METFORMIN HYDROCHLORIDE\VILDAGLIPTIN [Interacting]
     Active Substance: METFORMIN HYDROCHLORIDE\VILDAGLIPTIN
     Indication: Type 2 diabetes mellitus
     Dosage: 1 DOSAGE FORM (50 MG/1000 MG), QD
     Route: 048
  3. ESTRAMUSTINE PHOSPHATE SODIUM [Suspect]
     Active Substance: ESTRAMUSTINE PHOSPHATE SODIUM
     Indication: Prostate cancer
     Dosage: 140 MILLIGRAM, QD
     Route: 048
     Dates: start: 20220801, end: 20220807

REACTIONS (2)
  - Drug interaction [Unknown]
  - Angioedema [Recovered/Resolved]

NARRATIVE: CASE EVENT DATE: 20220801
